FAERS Safety Report 7489903-1 (Version None)
Quarter: 2011Q2

REPORT INFORMATION
  Report Type: 
  Country: None (occurrence: None)
  Receive Date: 20110517
  Receipt Date: 20110517
  Transmission Date: 20111010
  Serious: Yes (Other)
  Sender: FDA-Public Use
  Company Number: None

PATIENT
  Sex: Male
  Weight: 64 kg

DRUGS (2)
  1. SERTRALINE HYDROCHLORIDE [Suspect]
     Dosage: 50MG DAILY PO
     Route: 048
     Dates: start: 20100901, end: 20101031
  2. SERTRALINE HYDROCHLORIDE [Suspect]
     Dosage: 50MG DAILY PO
     Route: 048
     Dates: start: 20101101, end: 20101231

REACTIONS (5)
  - TINNITUS [None]
  - ANAEMIA [None]
  - ANORGASMIA [None]
  - SEXUAL DYSFUNCTION [None]
  - LOSS OF LIBIDO [None]
